FAERS Safety Report 21434660 (Version 1)
Quarter: 2022Q4

REPORT INFORMATION
  Report Type: Spontaneous
  Country: US (occurrence: US)
  Receive Date: 20221010
  Receipt Date: 20221010
  Transmission Date: 20230113
  Serious: Yes (Hospitalization, Other)
  Sender: FDA-Public Use
  Company Number: US-NATCOUSA-2022-NATCOUSA-000083

PATIENT
  Age: 14 Year
  Sex: Male

DRUGS (3)
  1. LETROZOLE [Interacting]
     Active Substance: LETROZOLE
     Indication: Growth hormone deficiency
  2. DEXMETHYLPHENIDATE [Interacting]
     Active Substance: DEXMETHYLPHENIDATE
     Indication: Attention deficit hyperactivity disorder
     Dosage: EXTENDED RELEASE
  3. SOMATROPIN [Interacting]
     Active Substance: SOMATROPIN
     Indication: Growth hormone deficiency

REACTIONS (2)
  - Rhabdomyolysis [Recovering/Resolving]
  - Drug interaction [Recovering/Resolving]
